FAERS Safety Report 5389769-X (Version None)
Quarter: 2007Q3

REPORT INFORMATION
  Report Type: 
  Country: None (occurrence: None)
  Receive Date: 20070717
  Receipt Date: 20070709
  Transmission Date: 20080115
  Serious: Yes (Hospitalization)
  Sender: FDA-Public Use
  Company Number: US-MERCK-0707USA01568

PATIENT
  Sex: Male

DRUGS (4)
  1. ZOCOR [Suspect]
     Indication: BLOOD CHOLESTEROL
     Route: 048
  2. ALTACE [Concomitant]
     Route: 065
  3. DIFLUCAN [Concomitant]
     Route: 065
  4. DILTIAZEM HYDROCHLORIDE [Concomitant]
     Route: 065

REACTIONS (3)
  - ASTHENIA [None]
  - BLOOD POTASSIUM INCREASED [None]
  - MALAISE [None]
